FAERS Safety Report 16355639 (Version 1)
Quarter: 2019Q2

REPORT INFORMATION
  Report Type: Not Available
  Country: US (occurrence: US)
  Receive Date: 20190525
  Receipt Date: 20190525
  Transmission Date: 20190711
  Serious: No
  Sender: FDA-Public Use
  Company Number: US-NEUROCRINE BIOSCIENCES INC.-2019NBI01245

PATIENT
  Sex: Male

DRUGS (3)
  1. INGREZZA [Suspect]
     Active Substance: VALBENAZINE
     Route: 048
     Dates: start: 2019
  2. INGREZZA [Suspect]
     Active Substance: VALBENAZINE
     Indication: TARDIVE DYSKINESIA
     Route: 048
     Dates: start: 20190422, end: 20190428
  3. INGREZZA [Suspect]
     Active Substance: VALBENAZINE
     Dosage: 40 X 2 CAPSULE
     Route: 048
     Dates: start: 20190429

REACTIONS (2)
  - Restless legs syndrome [Unknown]
  - Inappropriate schedule of product administration [Unknown]

NARRATIVE: CASE EVENT DATE: 2019
